FAERS Safety Report 16808706 (Version 3)
Quarter: 2020Q3

REPORT INFORMATION
  Report Type: Spontaneous
  Country: US (occurrence: US)
  Receive Date: 20190916
  Receipt Date: 20200819
  Transmission Date: 20201102
  Serious: Yes (Other)
  Sender: FDA-Public Use
  Company Number: US-GILEAD-2019-0428019

PATIENT
  Age: 51 Year
  Sex: Female

DRUGS (3)
  1. ATRIPLA [Suspect]
     Active Substance: EFAVIRENZ\EMTRICITABINE\TENOFOVIR DISOPROXIL FUMARATE
     Indication: HIV INFECTION
     Dosage: UNK
     Route: 048
     Dates: start: 20100920, end: 20141113
  2. TRUVADA [Suspect]
     Active Substance: EMTRICITABINE\TENOFOVIR DISOPROXIL FUMARATE
     Indication: HIV INFECTION
     Dosage: UNK
     Route: 048
     Dates: start: 20090629, end: 20100920
  3. STRIBILD [Suspect]
     Active Substance: COBICISTAT\ELVITEGRAVIR\EMTRICITABINE\TENOFOVIR DISOPROXIL FUMARATE
     Indication: HIV INFECTION
     Dosage: UNK
     Route: 048
     Dates: start: 20141113, end: 201708

REACTIONS (10)
  - Osteoarthritis [Not Recovered/Not Resolved]
  - Emotional distress [Unknown]
  - Bone density decreased [Not Recovered/Not Resolved]
  - Anhedonia [Unknown]
  - Multiple fractures [Unknown]
  - Pain [Unknown]
  - Anxiety [Unknown]
  - Osteoporosis [Unknown]
  - Ankle fracture [Recovered/Resolved]
  - Economic problem [Unknown]

NARRATIVE: CASE EVENT DATE: 20141015
